FAERS Safety Report 15556057 (Version 1)
Quarter: 2018Q4

REPORT INFORMATION
  Report Type: Spontaneous
  Country: US (occurrence: US)
  Receive Date: 20181026
  Receipt Date: 20181026
  Transmission Date: 20190205
  Serious: No
  Sender: FDA-Public Use
  Company Number: US-BAYER-2018-198634

PATIENT
  Age: 62 Year
  Sex: Female
  Weight: 125 kg

DRUGS (2)
  1. ONE A DAY ESSENTIAL [Concomitant]
     Active Substance: VITAMINS
     Dosage: UNK
     Route: 048
  2. MIRALAX [Suspect]
     Active Substance: POLYETHYLENE GLYCOL 3350
     Indication: GASTROINTESTINAL DISORDER
     Dosage: 17 G, UNK
     Route: 048
     Dates: start: 201810, end: 201810

REACTIONS (1)
  - Peripheral swelling [Unknown]
